FAERS Safety Report 9188640 (Version 1)
Quarter: 2013Q1

REPORT INFORMATION
  Report Type: Spontaneous
  Country: IT (occurrence: IT)
  Receive Date: 20130325
  Receipt Date: 20130325
  Transmission Date: 20140127
  Serious: Yes (Other)
  Sender: FDA-Public Use
  Company Number: IT-TEVA-392816ISR

PATIENT
  Age: 70 Year
  Sex: Female

DRUGS (8)
  1. PACLITAXEL TEVA [Suspect]
     Indication: BREAST CANCER
     Dosage: 240 MILLIGRAM DAILY;
     Route: 042
     Dates: start: 20121112, end: 20121228
  2. ONDANSETRON [Concomitant]
     Dosage: 8 MILLIGRAM DAILY;
     Route: 042
     Dates: start: 20121112, end: 20121228
  3. DESAMETASONE [Concomitant]
     Dosage: 12 MILLIGRAM DAILY;
     Route: 042
     Dates: start: 20121112, end: 20121228
  4. CLORFENAMINA [Concomitant]
     Dosage: 10 MILLIGRAM DAILY;
     Route: 030
     Dates: start: 20121112, end: 20121228
  5. OMEPRAZOLO [Concomitant]
     Dosage: 20 MILLIGRAM DAILY;
     Route: 048
  6. DILTIAZEM [Concomitant]
     Indication: HYPERTENSION
     Route: 048
  7. SIMVASTATINA [Concomitant]
     Indication: HYPERCHOLESTEROLAEMIA
     Route: 048
  8. GEMCITABINA [Concomitant]
     Indication: BREAST CANCER
     Dosage: 1700 MILLIGRAM DAILY;
     Route: 042
     Dates: start: 20121112, end: 20121203

REACTIONS (3)
  - Feeling hot [Recovered/Resolved]
  - Dyspnoea [Recovered/Resolved]
  - Throat irritation [Recovered/Resolved]
